FAERS Safety Report 6793972-1 (Version None)
Quarter: 2010Q2

REPORT INFORMATION
  Report Type: 
  Country: None (occurrence: None)
  Receive Date: 20100624
  Receipt Date: 20070614
  Transmission Date: 20101027
  Serious: No
  Sender: FDA-Public Use
  Company Number: US-PFIZER INC-ENC200700083

PATIENT
  Age: 39 Year
  Sex: Male
  Weight: 100 kg

DRUGS (14)
  1. ARGATROBAN [Suspect]
     Indication: THROMBOSIS
     Dosage: 2MCG/KG/MIN
     Route: 042
     Dates: start: 20070612, end: 20070614
  2. ARGATROBAN [Suspect]
     Dosage: FREQUENCY:  HR
     Route: 065
     Dates: start: 20070615
  3. HEPARIN [Suspect]
     Indication: CENTRAL VENOUS CATHETERISATION
     Dosage: 2900 UT,FREQUENCY:  HR
     Route: 042
     Dates: start: 20070604, end: 20070612
  4. METOCLOPRAMIDE [Concomitant]
  5. SODIUM CHLORIDE [Concomitant]
     Dates: start: 20070613
  6. MICONAZOLE NITRATE [Concomitant]
     Dates: start: 20070613
  7. LORAZEPAM [Concomitant]
  8. CHLORINATED SODA SOLUTION [Concomitant]
     Dates: start: 20070604
  9. PARACETAMOL [Concomitant]
  10. PANTOPRAZOLE [Concomitant]
     Dates: start: 20070603
  11. PROPOFOL [Concomitant]
     Dates: start: 20070602, end: 20070608
  12. IMIPENEM [Concomitant]
     Dates: start: 20070612
  13. VALPROATE SODIUM [Concomitant]
     Dates: start: 20070607
  14. PHENYLEPHRINE HYDROCHLORIDE [Concomitant]
     Dates: start: 20070602

REACTIONS (2)
  - ACTIVATED PARTIAL THROMBOPLASTIN TIME PROLONGED [None]
  - INTERNATIONAL NORMALISED RATIO INCREASED [None]
